FAERS Safety Report 6541317-4 (Version None)
Quarter: 2010Q1

REPORT INFORMATION
  Report Type: 
  Country: None (occurrence: None)
  Receive Date: 20100118
  Receipt Date: 20100106
  Transmission Date: 20100710
  Serious: Yes (Death)
  Sender: FDA-Public Use
  Company Number: US-ELI_LILLY_AND_COMPANY-US201001000900

PATIENT
  Sex: Male

DRUGS (1)
  1. ZYPREXA ZYDIS [Suspect]

REACTIONS (1)
  - DEATH [None]
